FAERS Safety Report 14679675 (Version 1)
Quarter: 2018Q1

REPORT INFORMATION
  Report Type: Spontaneous
  Country: GB (occurrence: GB)
  Receive Date: 20180326
  Receipt Date: 20180326
  Transmission Date: 20180509
  Serious: Yes (Life-Threatening)
  Sender: FDA-Public Use
  Company Number: GB-US WORLDMEDS, LLC-USW201707-000972

PATIENT
  Age: 65 Year
  Sex: Female

DRUGS (1)
  1. APOMORPHINE HYDROCHLORIDE [Suspect]
     Active Substance: APOMORPHINE HYDROCHLORIDE
     Indication: PARKINSON^S DISEASE

REACTIONS (6)
  - Drug ineffective [Unknown]
  - Incorrect route of drug administration [Unknown]
  - Product name confusion [Unknown]
  - Depressed level of consciousness [Unknown]
  - Joint dislocation [Not Recovered/Not Resolved]
  - Bone erosion [Not Recovered/Not Resolved]

NARRATIVE: CASE EVENT DATE: 2017
